FAERS Safety Report 9769634 (Version 6)
Quarter: 2014Q2

REPORT INFORMATION
  Report Type: Report from Study
  Country: AU (occurrence: AU)
  Receive Date: 20131218
  Receipt Date: 20140506
  Transmission Date: 20141212
  Serious: Yes (Hospitalization)
  Sender: FDA-Public Use
  Company Number: AU-ROCHE-1253651

PATIENT
  Age: 42 Year
  Sex: Female
  Weight: 143.5 kg

DRUGS (12)
  1. VEMURAFENIB [Suspect]
     Indication: METASTATIC MALIGNANT MELANOMA
     Dosage: LAST DOSE PRIOR TO EVENT: 24/JUL/2013
     Route: 048
     Dates: start: 20130704, end: 20130724
  2. VEMURAFENIB [Suspect]
     Route: 048
     Dates: start: 20130823
  3. NEXIUM [Concomitant]
     Indication: GASTROOESOPHAGEAL REFLUX DISEASE
     Route: 048
     Dates: start: 2005
  4. DIAZEPAM [Concomitant]
     Indication: ANXIETY
     Route: 048
     Dates: start: 2011
  5. VOLTAREN [Concomitant]
     Indication: PAIN
     Route: 048
     Dates: start: 201307
  6. PANADOL [Concomitant]
     Indication: PAIN
     Route: 048
     Dates: start: 2003
  7. CLINDATECH [Concomitant]
     Indication: DERMATITIS ACNEIFORM
     Route: 061
     Dates: start: 20130801
  8. ENOXAPARIN [Concomitant]
     Indication: PROPHYLAXIS
     Route: 058
     Dates: start: 20130724, end: 20130724
  9. CELEBREX [Concomitant]
     Indication: PAIN
     Route: 048
     Dates: start: 20140201
  10. PANADOL OSTEO [Concomitant]
     Indication: ARTHRALGIA
     Route: 048
     Dates: start: 20131205
  11. COBIMETINIB [Suspect]
     Indication: METASTATIC MALIGNANT MELANOMA
     Route: 048
     Dates: start: 20130705, end: 20130724
  12. COBIMETINIB [Suspect]
     Dosage: BLINDED DOSE
     Route: 048
     Dates: start: 20130823

REACTIONS (2)
  - Pyrexia [Recovered/Resolved]
  - Panniculitis [Recovering/Resolving]
